FAERS Safety Report 4798028-5 (Version None)
Quarter: 2005Q3

REPORT INFORMATION
  Report Type: 
  Country: None (occurrence: None)
  Receive Date: 20050929
  Receipt Date: 20050817
  Transmission Date: 20060218
  Serious: No
  Sender: FDA-Public Use
  Company Number: 05P-163-0308454

PATIENT
  Age: 60 Year
  Sex: Female

DRUGS (2)
  1. HUMIRA               (ADALIMUMAB) [Suspect]
     Indication: RHEUMATOID ARTHRITIS
     Dosage: 40 MG, 1 IN 2 WK, SUBCUTANEOUS
     Route: 058
     Dates: start: 20050803
  2. FLUOXETINE HYDROCHLORIDE [Concomitant]

REACTIONS (2)
  - DEPRESSION [None]
  - INJECTION SITE PAIN [None]
